FAERS Safety Report 11089943 (Version 1)
Quarter: 2015Q2

REPORT INFORMATION
  Report Type: Report from Study
  Country: US (occurrence: None)
  Receive Date: 20150504
  Receipt Date: 20150504
  Transmission Date: 20150821
  Serious: Yes (Other)
  Sender: FDA-Public Use
  Company Number: US-2015CRT000428

PATIENT
  Age: 74 Year
  Sex: Female

DRUGS (9)
  1. KORLYM [Suspect]
     Active Substance: MIFEPRISTONE
     Indication: CUSHING^S SYNDROME
     Route: 048
     Dates: start: 20140527
  2. CELEBREX [Concomitant]
     Active Substance: CELECOXIB
  3. MULTIVITAMIN (ASCORBIC ACID, CALCIU, PANTOTHENATE, ERGOCALCIFEROL, NICOTINAMIDE, PYRIDOXINE HYDROCGKORIDE, RETINOL, RIBOFLAVIN, THIAMINE HYDROCHLORIDE) [Concomitant]
  4. ATENOLOL. [Concomitant]
     Active Substance: ATENOLOL
  5. LIPITOR [Concomitant]
     Active Substance: ATORVASTATIN CALCIUM
  6. VITAMIN D (ERGOCALCIFEROL) [Concomitant]
     Active Substance: ERGOCALCIFEROL
  7. VERAPAMIL [Concomitant]
     Active Substance: VERAPAMIL HYDROCHLORIDE
  8. PLAVIX (CLOPIDOGREK BISULFATE) [Concomitant]
  9. ASPIRIN (ACETYKSALICYLIC ACID) [Concomitant]

REACTIONS (4)
  - Blood potassium decreased [None]
  - Hyperhidrosis [None]
  - Coronary arterial stent insertion [None]
  - Blood glucose decreased [None]
